FAERS Safety Report 9202570 (Version 1)
Quarter: 2013Q2

REPORT INFORMATION
  Report Type: Spontaneous
  Country: FR (occurrence: FR)
  Receive Date: 20130401
  Receipt Date: 20130401
  Transmission Date: 20140414
  Serious: Yes (Other)
  Sender: FDA-Public Use
  Company Number: FR-VERTEX PHARMACEUTICALS INC.-2013-004312

PATIENT
  Age: 73 Year
  Sex: Male
  Weight: 87 kg

DRUGS (11)
  1. INCIVO [Suspect]
     Indication: HEPATITIS C
     Dosage: 750 MG, TID
     Route: 048
     Dates: start: 20110412
  2. COPEGUS [Concomitant]
     Indication: HEPATITIS C
     Dosage: DOSAGE FORM: UNSPECIFIED
     Route: 065
     Dates: start: 20110412
  3. PEGASYS [Concomitant]
     Indication: HEPATITIS C
     Dosage: UNK, QW
     Route: 065
     Dates: start: 20110412
  4. ADANCOR [Concomitant]
     Indication: CARDIAC DISORDER
     Dosage: DOSAGE FORM: UNSPECIFIED
     Route: 065
     Dates: start: 2006
  5. KARDEGIC [Concomitant]
     Indication: CARDIAC DISORDER
     Dosage: DOSAGE FORM: UNSPECIFIED
     Route: 065
     Dates: start: 1995
  6. ODRIK [Concomitant]
     Indication: HYPERTENSION
     Dosage: DOSAGE FORM: UNSPECIFIED
     Route: 065
     Dates: start: 2007
  7. VERAPAMIL [Concomitant]
     Indication: HYPERTENSION
     Dosage: DOSAGE FORM: UNSPECIFIED
     Route: 065
     Dates: start: 2006
  8. PRAVASTATIN [Concomitant]
     Indication: HYPERTRIGLYCERIDAEMIA
     Dosage: DOSAGE FORM: UNSPECIFIED
     Route: 065
     Dates: start: 2002
  9. ALLOPURINOL [Concomitant]
     Indication: HYPERURICAEMIA
     Dosage: DOSAGE FORM: UNSPECIFIED
     Route: 065
     Dates: start: 2000
  10. LANZOR [Concomitant]
     Indication: ABDOMINAL PAIN UPPER
     Dosage: DOSAGE FORM: UNSPECIFIED
     Route: 065
     Dates: start: 2006
  11. AERIUS [Concomitant]
     Indication: URTICARIA
     Dosage: DOSAGE FORM: UNSPECIFIED
     Route: 065
     Dates: start: 2009

REACTIONS (1)
  - Impetigo [Recovered/Resolved]
